FAERS Safety Report 5131548-2 (Version None)
Quarter: 2006Q4

REPORT INFORMATION
  Report Type: 
  Country: None (occurrence: None)
  Receive Date: 20061020
  Receipt Date: 20061011
  Transmission Date: 20070319
  Serious: Yes (Other)
  Sender: FDA-Public Use
  Company Number: US-ROCHE-467132

PATIENT
  Sex: Female

DRUGS (2)
  1. XELODA [Suspect]
     Route: 048
  2. XELODA [Suspect]
     Dosage: THERAPY RE-INTRODUCED AFTER THREE DAYS.
     Route: 048

REACTIONS (1)
  - SMALL INTESTINAL OBSTRUCTION [None]
